FAERS Safety Report 11377814 (Version 1)
Quarter: 2015Q3

REPORT INFORMATION
  Report Type: Spontaneous
  Country: US (occurrence: US)
  Receive Date: 20150811
  Receipt Date: 20150811
  Transmission Date: 20151125
  Serious: No
  Sender: FDA-Public Use
  Company Number: US-ELI_LILLY_AND_COMPANY-US200909001714

PATIENT
  Age: 68 Year
  Sex: Female

DRUGS (3)
  1. SYNTHROID [Concomitant]
     Active Substance: LEVOTHYROXINE SODIUM
  2. LEVEMIR [Concomitant]
     Active Substance: INSULIN DETEMIR
     Dosage: UNK, DAILY (1/D)
  3. HUMULIN R [Suspect]
     Active Substance: INSULIN HUMAN
     Dosage: UNK, 2/D

REACTIONS (9)
  - Blood glucose decreased [Recovered/Resolved]
  - Hypoglycaemia unawareness [Unknown]
  - Malaise [Unknown]
  - Blood glucose decreased [Recovered/Resolved]
  - Visual impairment [Unknown]
  - Hyperhidrosis [Unknown]
  - Blood glucose increased [Recovered/Resolved]
  - Therapeutic response increased [Unknown]
  - Panic attack [Not Recovered/Not Resolved]

NARRATIVE: CASE EVENT DATE: 20090903
